FAERS Safety Report 4606910-4 (Version None)
Quarter: 2005Q1

REPORT INFORMATION
  Report Type: 
  Country: None (occurrence: None)
  Receive Date: 20050310
  Receipt Date: 20050226
  Transmission Date: 20050727
  Serious: Yes (Other)
  Sender: FDA-Public Use
  Company Number: 2004056062

PATIENT
  Age: 75 Year
  Sex: Female

DRUGS (7)
  1. ZOLOFT [Suspect]
     Indication: ANXIETY
     Dosage: (1 IN 1 D), ORAL
     Route: 048
     Dates: start: 19930201
  2. ZOLOFT [Suspect]
     Indication: DEPRESSION
     Dosage: (1 IN 1 D), ORAL
     Route: 048
     Dates: start: 19930201
  3. ALPRAZOLAM [Suspect]
     Indication: ANXIETY
     Dosage: (1 IN 1 D), ORAL
     Route: 048
     Dates: start: 19930201
  4. ALPRAZOLAM [Suspect]
     Indication: DEPRESSION
     Dosage: (1 IN 1 D), ORAL
     Route: 048
     Dates: start: 19930201
  5. ALENDRONATE SODIUM [Concomitant]
  6. THYROID TAB [Concomitant]
  7. CELECOXIB (CELECOXIB) [Concomitant]

REACTIONS (8)
  - BODY HEIGHT DECREASED [None]
  - DEPRESSION [None]
  - HYPERTONIC BLADDER [None]
  - MEDICATION ERROR [None]
  - OSTEOARTHRITIS [None]
  - TREATMENT NONCOMPLIANCE [None]
  - UMBILICAL HERNIA [None]
  - WEIGHT INCREASED [None]
